FAERS Safety Report 25841592 (Version 1)
Quarter: 2025Q3

REPORT INFORMATION
  Report Type: Spontaneous
  Country: US (occurrence: None)
  Receive Date: 20250924
  Receipt Date: 20250924
  Transmission Date: 20251020
  Serious: No
  Sender: FDA-CTU
  Company Number: None

PATIENT
  Age: 22 Year
  Sex: Female
  Weight: 110.7 kg

DRUGS (6)
  1. SOFDRA [Suspect]
     Active Substance: SOFPIRONIUM BROMIDE
     Indication: Hyperhidrosis
     Dosage: 1 MULTI-DOSE PUMP AT BEDTIME TOPICAL
     Route: 061
     Dates: start: 20250922
  2. CAPLYTA [Concomitant]
     Active Substance: LUMATEPERONE
  3. PRAZOSIN [Concomitant]
     Active Substance: PRAZOSIN
  4. GABAPENTIN [Concomitant]
     Active Substance: GABAPENTIN
  5. CLOMIPRAMINE [Concomitant]
     Active Substance: CLOMIPRAMINE
  6. ZORYVE [Concomitant]
     Active Substance: ROFLUMILAST

REACTIONS (6)
  - Application site burn [None]
  - Dry throat [None]
  - Oropharyngeal pain [None]
  - Dry mouth [None]
  - Dehydration [None]
  - Vision blurred [None]

NARRATIVE: CASE EVENT DATE: 20250923
